FAERS Safety Report 15497188 (Version 1)
Quarter: 2018Q4

REPORT INFORMATION
  Report Type: Spontaneous
  Country: US (occurrence: US)
  Receive Date: 20181005
  Receipt Date: 20181005
  Transmission Date: 20190205
  Serious: Yes (Other)
  Sender: FDA-Public Use
  Company Number: None

PATIENT
  Age: 32 Year
  Sex: Female
  Weight: 72 kg

DRUGS (3)
  1. CYMBALTA [Suspect]
     Active Substance: DULOXETINE HYDROCHLORIDE
     Indication: DEPRESSION
     Dosage: ?          QUANTITY:1 DF DOSAGE FORM;?
     Route: 048
     Dates: start: 20070301, end: 20141101
  2. ESTRADIOL. [Concomitant]
     Active Substance: ESTRADIOL
  3. SUYNTHROID [Concomitant]

REACTIONS (5)
  - Nausea [None]
  - Vomiting [None]
  - Influenza like illness [None]
  - Paraesthesia [None]
  - Drug withdrawal syndrome [None]

NARRATIVE: CASE EVENT DATE: 20141101
